FAERS Safety Report 6644005-9 (Version None)
Quarter: 2010Q1

REPORT INFORMATION
  Report Type: 
  Country: None (occurrence: None)
  Receive Date: 20100322
  Receipt Date: 20100309
  Transmission Date: 20100710
  Serious: Yes (Death)
  Sender: FDA-Public Use
  Company Number: GB-ELI_LILLY_AND_COMPANY-GB201003002283

PATIENT
  Age: 48 Year
  Sex: Male

DRUGS (2)
  1. ZYPREXA [Suspect]
     Indication: DEPRESSION
     Dosage: 2.5 MG, UNK
  2. CIPRAMIL [Concomitant]

REACTIONS (2)
  - COMPLETED SUICIDE [None]
  - OFF LABEL USE [None]
